FAERS Safety Report 7358286-X (Version None)
Quarter: 2011Q1

REPORT INFORMATION
  Report Type: 
  Country: None (occurrence: None)
  Receive Date: 20110314
  Receipt Date: 20110314
  Transmission Date: 20110831
  Serious: Yes (Other)
  Sender: FDA-Public Use
  Company Number: None

PATIENT
  Age: 2 Year
  Sex: Male
  Weight: 14.5151 kg

DRUGS (1)
  1. LANSOPRAZOLE [Suspect]
     Dosage: 1 -30 MG TABLET DAILY PO
     Route: 048
     Dates: start: 20110211, end: 20110224

REACTIONS (1)
  - URTICARIA [None]
